FAERS Safety Report 6148804-1 (Version None)
Quarter: 2009Q2

REPORT INFORMATION
  Report Type: 
  Country: None (occurrence: None)
  Receive Date: 20090408
  Receipt Date: 20090402
  Transmission Date: 20091009
  Serious: Yes (Life-Threatening)
  Sender: FDA-Public Use
  Company Number: PE-ABBOTT-09P-127-0566218-00

PATIENT
  Age: 86 Year
  Sex: Female

DRUGS (5)
  1. TARKA [Suspect]
     Indication: HYPERTENSION
     Dosage: 180/2 MILLIGRAMS DAILY
     Route: 048
     Dates: start: 20080101, end: 20090401
  2. INSULIN [Concomitant]
     Indication: DIABETES MELLITUS
     Dosage: DAILY 32 UI; 20 UI IN MORNING AND 12 UI AT NIGHT
     Route: 058
  3. DIURETIC [Concomitant]
     Indication: GLAUCOMA
     Route: 048
     Dates: start: 20090301
  4. DOXIUM [Concomitant]
     Indication: DRUG USE FOR UNKNOWN INDICATION
     Route: 048
  5. ASPIRIN [Concomitant]
     Indication: ANTIPLATELET THERAPY
     Route: 048

REACTIONS (4)
  - BRADYCARDIA [None]
  - HYPOTENSION [None]
  - SOMNOLENCE [None]
  - URINARY TRACT INFECTION [None]
